FAERS Safety Report 9509814 (Version 1)
Quarter: 2013Q3

REPORT INFORMATION
  Report Type: Spontaneous
  Country: US (occurrence: US)
  Receive Date: 20130909
  Receipt Date: 20130909
  Transmission Date: 20140515
  Serious: No
  Sender: FDA-Public Use
  Company Number: US-BRISTOL-MYERS SQUIBB COMPANY-18836841

PATIENT
  Sex: Female

DRUGS (2)
  1. ABILIFY [Suspect]
     Indication: DEPRESSION
     Dosage: START DATE:10YEARS AGO?END DATE:2WEEKS AGO APR13
  2. ZOLOFT [Suspect]
     Indication: DEPRESSION
     Dosage: START DATE: 10 YEARS AGO-ONG

REACTIONS (1)
  - Weight decreased [Recovered/Resolved]
